FAERS Safety Report 6071494-3 (Version None)
Quarter: 2009Q1

REPORT INFORMATION
  Report Type: 
  Country: None (occurrence: None)
  Receive Date: 20090209
  Receipt Date: 20090209
  Transmission Date: 20090719
  Serious: Yes (Other)
  Sender: FDA-Public Use
  Company Number: None

PATIENT
  Age: 8 Year
  Sex: Female
  Weight: 19.0511 kg

DRUGS (1)
  1. AMOXICILLIN [Suspect]
     Indication: TOOTH INFECTION
     Dosage: 1 TSP 2X A DAY
     Dates: start: 20080113, end: 20080118

REACTIONS (2)
  - THROAT IRRITATION [None]
  - URTICARIA [None]
